FAERS Safety Report 4446489-3 (Version None)
Quarter: 2004Q3

REPORT INFORMATION
  Report Type: 
  Country: None (occurrence: None)
  Receive Date: 20040909
  Receipt Date: 20040902
  Transmission Date: 20050211
  Serious: Yes (Death, Hospitalization)
  Sender: FDA-Public Use
  Company Number: 8767

PATIENT
  Age: 18 Year
  Sex: Male

DRUGS (1)
  1. METHYLENE BLUE [Suspect]
     Dosage: 1 MG/KG IV
     Route: 042

REACTIONS (11)
  - ACQUIRED METHAEMOGLOBINAEMIA [None]
  - CARDIAC ARREST [None]
  - COMA [None]
  - CYANOSIS [None]
  - HAEMOGLOBIN DECREASED [None]
  - HAEMOLYSIS [None]
  - NEUTROPHILIA [None]
  - POLYCHROMASIA [None]
  - RED BLOOD CELL MORPHOLOGY ABNORMAL [None]
  - RENAL FAILURE ACUTE [None]
  - SHIFT TO THE LEFT [None]
